FAERS Safety Report 14388891 (Version 2)
Quarter: 2018Q4

REPORT INFORMATION
  Report Type: Spontaneous
  Country: US (occurrence: US)
  Receive Date: 20180115
  Receipt Date: 20181022
  Transmission Date: 20190204
  Serious: Yes (Other)
  Sender: FDA-Public Use
  Company Number: US-SA-2017SA221034

PATIENT
  Age: 53 Year
  Sex: Female
  Weight: 80.78 kg

DRUGS (7)
  1. TAXOTERE [Suspect]
     Active Substance: DOCETAXEL
     Indication: BREAST CANCER FEMALE
     Dosage: 145 MG, Q3W
     Route: 042
     Dates: start: 20121019, end: 20121019
  2. TAXOTERE [Suspect]
     Active Substance: DOCETAXEL
     Dosage: 145 MG, Q3W
     Route: 042
     Dates: start: 20130204, end: 20130204
  3. CLONIDINE. [Concomitant]
     Active Substance: CLONIDINE
  4. POTASSIUM [Concomitant]
     Active Substance: POTASSIUM
  5. PARAPLATIN [Concomitant]
     Active Substance: CARBOPLATIN
  6. ZOFRAN [ONDANSETRON] [Concomitant]
  7. HERCEPTIN [Concomitant]
     Active Substance: TRASTUZUMAB

REACTIONS (5)
  - Pain [Unknown]
  - Emotional distress [Unknown]
  - Alopecia [Recovering/Resolving]
  - Psychological trauma [Unknown]
  - Anxiety [Unknown]

NARRATIVE: CASE EVENT DATE: 201302
